FAERS Safety Report 5283116-X (Version None)
Quarter: 2007Q2

REPORT INFORMATION
  Report Type: 
  Country: None (occurrence: None)
  Receive Date: 20070402
  Receipt Date: 20070320
  Transmission Date: 20071010
  Serious: Yes (Other)
  Sender: FDA-Public Use
  Company Number: SA-ELI_LILLY_AND_COMPANY-SA200703003941

PATIENT
  Age: 50 Year
  Sex: Female

DRUGS (4)
  1. CYMBALTA [Suspect]
     Indication: MAJOR DEPRESSION
     Dosage: 60 MG, DAILY (1/D)
     Route: 048
  2. LEXOTANIL [Concomitant]
  3. AMLOR [Concomitant]
     Indication: HYPERTENSION
  4. CONCOR [Concomitant]
     Indication: HYPERTENSION

REACTIONS (1)
  - HYPERTENSION [None]
